FAERS Safety Report 5275750-8 (Version None)
Quarter: 2007Q1

REPORT INFORMATION
  Report Type: 
  Country: None (occurrence: None)
  Receive Date: 20070326
  Receipt Date: 20070323
  Transmission Date: 20070707
  Serious: Yes (Death)
  Sender: FDA-Public Use
  Company Number: US-GLAXOSMITHKLINE-A0643954A

PATIENT
  Age: 69 Year
  Sex: Male
  Weight: 109 kg

DRUGS (12)
  1. FLOLAN [Suspect]
     Indication: PULMONARY HYPERTENSION
     Dosage: 15NGKM UNKNOWN
     Route: 042
     Dates: start: 20060206, end: 20070201
  2. LASIX [Concomitant]
     Route: 048
  3. VITAMIN E [Concomitant]
     Dosage: 1000IU PER DAY
     Route: 048
  4. CITRUCEL [Concomitant]
     Dosage: 250MG TWICE PER DAY
     Route: 048
  5. DUONEB [Concomitant]
     Route: 055
  6. SINGULAIR [Concomitant]
     Dosage: 10MG PER DAY
     Route: 048
  7. COMBIVENT [Concomitant]
     Route: 055
  8. ADVAIR DISKUS 100/50 [Concomitant]
     Dosage: 1PUFF TWICE PER DAY
     Route: 055
  9. ACIPHEX [Concomitant]
     Dosage: 20MG PER DAY
     Route: 048
  10. CARDIZEM LA [Concomitant]
     Dosage: 360MG PER DAY
     Route: 048
  11. MULTI-VITAMIN [Concomitant]
     Dosage: 1TAB PER DAY
     Route: 048
  12. OXYGEN [Concomitant]
     Route: 045

REACTIONS (1)
  - CATHETER SEPSIS [None]
